FAERS Safety Report 9168151 (Version 1)
Quarter: 2013Q1

REPORT INFORMATION
  Report Type: Spontaneous
  Country: JP (occurrence: JP)
  Receive Date: 20130318
  Receipt Date: 20130318
  Transmission Date: 20140127
  Serious: Yes (Other)
  Sender: FDA-Public Use
  Company Number: JP-ASTELLAS-2013JP003933

PATIENT
  Age: 26 Year
  Sex: Female

DRUGS (7)
  1. PROGRAF [Suspect]
     Indication: PROPHYLAXIS AGAINST GRAFT VERSUS HOST DISEASE
     Dosage: UNK
     Route: 065
  2. ARA-C [Concomitant]
     Indication: CORD BLOOD TRANSPLANT THERAPY
     Dosage: UNK
     Route: 065
  3. FLUDARABINE [Concomitant]
     Indication: CORD BLOOD TRANSPLANT THERAPY
     Route: 065
  4. MELPHALAN [Concomitant]
     Indication: CORD BLOOD TRANSPLANT THERAPY
     Route: 065
  5. BUSULFAN [Concomitant]
     Indication: CORD BLOOD TRANSPLANT THERAPY
     Dosage: UNK
     Route: 065
  6. METHYLPREDNISOLONE [Concomitant]
     Route: 065
  7. MYCOPHENOLATE MOFETIL [Concomitant]
     Route: 065

REACTIONS (2)
  - Drug ineffective [Unknown]
  - Acute graft versus host disease [Unknown]
